FAERS Safety Report 12602620 (Version 1)
Quarter: 2016Q3

REPORT INFORMATION
  Report Type: Spontaneous
  Country: US (occurrence: US)
  Receive Date: 20160728
  Receipt Date: 20160728
  Transmission Date: 20161109
  Serious: No
  Sender: FDA-Public Use
  Company Number: US-GLAXOSMITHKLINE-US2016108453

PATIENT
  Age: 29 Year
  Sex: Male

DRUGS (1)
  1. NICORETTE CINNAMON SURGE [Suspect]
     Active Substance: NICOTINE
     Indication: SMOKING CESSATION THERAPY
     Dosage: UNK
     Dates: end: 201607

REACTIONS (4)
  - Tooth disorder [Recovered/Resolved]
  - Oral pain [Recovered/Resolved]
  - Expired product administered [Recovered/Resolved]
  - Swelling face [Recovered/Resolved]
